FAERS Safety Report 24138307 (Version 2)
Quarter: 2024Q4

REPORT INFORMATION
  Report Type: Spontaneous
  Country: CA (occurrence: CA)
  Receive Date: 20240725
  Receipt Date: 20241231
  Transmission Date: 20250114
  Serious: Yes (Other)
  Sender: PURDUE
  Company Number: CA-HEALTHCANVIG-E2B_07182025

PATIENT
  Age: 83 Year
  Sex: Male

DRUGS (14)
  1. DILAUDID [Suspect]
     Active Substance: HYDROMORPHONE HYDROCHLORIDE
     Indication: Product used for unknown indication
     Dosage: UNK
     Route: 065
  2. DILAUDID [Suspect]
     Active Substance: HYDROMORPHONE HYDROCHLORIDE
     Dosage: UNK
     Route: 048
  3. ALBUREX [Suspect]
     Active Substance: ALBUMIN HUMAN
     Indication: Surgery
     Dosage: UNK
     Route: 065
  4. ALBUREX [Suspect]
     Active Substance: ALBUMIN HUMAN
     Indication: Splenectomy
  5. ALBUREX [Suspect]
     Active Substance: ALBUMIN HUMAN
     Indication: Lymphadenectomy
  6. ALBUREX [Suspect]
     Active Substance: ALBUMIN HUMAN
     Indication: Laparotomy
  7. ALBUREX [Suspect]
     Active Substance: ALBUMIN HUMAN
     Indication: Surgery
     Dosage: 500 MILLILITER
     Route: 065
  8. ALBUREX [Suspect]
     Active Substance: ALBUMIN HUMAN
     Indication: Splenectomy
  9. ALBUREX [Suspect]
     Active Substance: ALBUMIN HUMAN
     Indication: Lymphadenectomy
  10. ALBUREX [Suspect]
     Active Substance: ALBUMIN HUMAN
     Indication: Laparotomy
  11. CEFTRIAXONE SODIUM [Concomitant]
     Active Substance: CEFTRIAXONE SODIUM
     Indication: Antibiotic prophylaxis
     Dosage: UNK
     Route: 065
  12. CEFTRIAXONE SODIUM [Concomitant]
     Active Substance: CEFTRIAXONE SODIUM
     Dosage: 2 GRAM
     Route: 065
  13. DEMEROL [Concomitant]
     Active Substance: MEPERIDINE HYDROCHLORIDE
     Indication: Product used for unknown indication
     Dosage: UNK
     Route: 048
  14. ROPIVACAINE HYDROCHLORIDE [Concomitant]
     Active Substance: ROPIVACAINE HYDROCHLORIDE
     Indication: Product used for unknown indication
     Dosage: UNK
     Route: 065

REACTIONS (8)
  - Anaphylactic shock [Unknown]
  - Hypotension [Recovered/Resolved]
  - Shock [Recovered/Resolved]
  - Oxygen saturation decreased [Recovered/Resolved]
  - Urticaria [Recovered/Resolved]
  - Drug hypersensitivity [Recovered/Resolved]
  - Dysphonia [Recovered/Resolved]
  - Rash [Recovered/Resolved]
